FAERS Safety Report 25060039 (Version 1)
Quarter: 2025Q1

REPORT INFORMATION
  Report Type: Spontaneous
  Country: US (occurrence: None)
  Receive Date: 20250307
  Receipt Date: 20250307
  Transmission Date: 20250408
  Serious: Yes (Life-Threatening, Hospitalization, Disabling, Congenital Anomaly, Other)
  Sender: FDA-CTU
  Company Number: None

PATIENT
  Age: 73 Year
  Sex: Male
  Weight: 113.4 kg

DRUGS (17)
  1. ROSUVASTATIN [Suspect]
     Active Substance: ROSUVASTATIN
  2. ROSUVASTATIN [Suspect]
     Active Substance: ROSUVASTATIN
  3. ASPIRIN [Suspect]
     Active Substance: ASPIRIN
  4. ASPIRIN [Suspect]
     Active Substance: ASPIRIN
  5. LASIX [Suspect]
     Active Substance: FUROSEMIDE
  6. FUROSEMIDE [Suspect]
     Active Substance: FUROSEMIDE
  7. AMLODIPINE [Suspect]
     Active Substance: AMLODIPINE BESYLATE
  8. BENADRYL [Concomitant]
     Active Substance: DIPHENHYDRAMINE HYDROCHLORIDE
  9. ESCITALOPRAM [Concomitant]
     Active Substance: ESCITALOPRAM OXALATE
  10. METFORMIN [Concomitant]
     Active Substance: METFORMIN HYDROCHLORIDE
  11. EMPAGLIFLOZIN [Concomitant]
     Active Substance: EMPAGLIFLOZIN
  12. AMLODIPINE [Concomitant]
     Active Substance: AMLODIPINE BESYLATE
  13. FUROSEMIDE [Concomitant]
     Active Substance: FUROSEMIDE
  14. LISINOPRIL [Concomitant]
     Active Substance: LISINOPRIL
  15. ALBUTEROL [Concomitant]
     Active Substance: ALBUTEROL
  16. TIOTROPIUM [Concomitant]
     Active Substance: TIOTROPIUM
  17. VITAMINS [Concomitant]
     Active Substance: VITAMINS

REACTIONS (2)
  - Metabolic syndrome [None]
  - Myocardial infarction [None]

NARRATIVE: CASE EVENT DATE: 20250303
